FAERS Safety Report 5509040-2 (Version None)
Quarter: 2007Q4

REPORT INFORMATION
  Report Type: 
  Country: None (occurrence: None)
  Receive Date: 20071105
  Receipt Date: 20071023
  Transmission Date: 20080405
  Serious: Yes (Hospitalization)
  Sender: FDA-Public Use
  Company Number: 2007001786

PATIENT
  Age: 71 Year
  Sex: Male

DRUGS (9)
  1. ERLOTINIB(ERLOTINIB HCL) (TABLET) (ERLOTINIB HCL) [Suspect]
     Indication: GASTROINTESTINAL CARCINOMA
     Dosage: 150 MG, QD, ORAL
     Route: 048
     Dates: start: 20070727
  2. BEVACIZUMAB(INJECTION FOR INFUSION) [Suspect]
     Indication: GASTROINTESTINAL CARCINOMA
     Dosage: 800 MG,Q2W, INTRAVENOUS
     Route: 042
     Dates: start: 20070727, end: 20070910
  3. PAMOL(PARACETAMOL) [Concomitant]
  4. MORPHINE [Concomitant]
  5. PREDINISOLONE [Concomitant]
  6. DULCOLAX [Concomitant]
  7. PANTOPRAZOLE SODIUM [Concomitant]
  8. PERINDOPRIL ERBUMINE [Concomitant]
  9. CENTYL(BENDROFLUMETHIAZIDE) [Concomitant]

REACTIONS (1)
  - HYPERTENSION [None]
